FAERS Safety Report 24707400 (Version 1)
Quarter: 2024Q4

REPORT INFORMATION
  Report Type: Spontaneous
  Country: FR (occurrence: FR)
  Receive Date: 20241206
  Receipt Date: 20241206
  Transmission Date: 20250114
  Serious: Yes (Hospitalization)
  Sender: FERRING
  Company Number: None

PATIENT

DRUGS (11)
  1. FOLLITROPIN DELTA [Suspect]
     Active Substance: FOLLITROPIN DELTA
     Dosage: 1 DOSAGE FORM, 1 TIME DAILY, FOR 10 TO 14 DAYS
     Route: 058
  2. MENOPUR [Suspect]
     Active Substance: FOLLITROPIN\LUTEINIZING HORMONE
     Indication: In vitro fertilisation
     Dosage: 1 DOSAGE FORM, 1 TIME DAILY, FOR 10 TO 14 DAYS
     Route: 058
  3. TRIPTORELIN [Suspect]
     Active Substance: TRIPTORELIN
     Indication: In vitro fertilisation
     Dosage: 1 DOSAGE FORM, 1 TIME DAILY
     Route: 058
  4. GANIRELIX ACETATE [Suspect]
     Active Substance: GANIRELIX ACETATE
     Indication: In vitro fertilisation
     Dosage: 0,25 MG/0,5 ML, 1 DOSAGE FORM, 1 TIME DAILY, FOR 5 TO 10 DAYS
     Route: 058
  5. ESTRADIOL [Suspect]
     Active Substance: ESTRADIOL
     Indication: In vitro fertilisation
     Dosage: 1 DOSAGE FORM, 1 TIME DAILY, FOR 1-3 WEEKS FROM THE 22ND DAY OF THE CYCLE
     Route: 048
  6. CHORIOGONADOTROPIN ALFA [Suspect]
     Active Substance: CHORIOGONADOTROPIN ALFA
     Indication: In vitro fertilisation
     Dosage: 250 UG/0,5 ML, 1 DOSAGE FORM, 1 TIME DAILY
     Route: 058
  7. METFORMIN HYDROCHLORIDE [Concomitant]
     Active Substance: METFORMIN HYDROCHLORIDE
     Dosage: 500 MG, 2 TIMES DAILY
     Route: 048
  8. DULOXETINE HYDROCHLORIDE [Concomitant]
     Active Substance: DULOXETINE HYDROCHLORIDE
     Dosage: 60 MG, EVERY OTHER DAY
     Route: 048
  9. TERALITHE [Concomitant]
     Active Substance: LITHIUM CARBONATE
     Indication: Thyroiditis
     Dosage: 1 DOSAGE FORM, 2 TIMES DAILY
     Route: 048
  10. OXAZEPAM [Concomitant]
     Active Substance: OXAZEPAM
     Dosage: 1 DOSAGE FORM, 2 TIMES DAILY
     Route: 048
  11. PRAMIPEXOLE DIHYDROCHLORIDE [Concomitant]
     Active Substance: PRAMIPEXOLE DIHYDROCHLORIDE
     Dosage: 1.05 MG, 1 TIME DAILY
     Route: 048

REACTIONS (1)
  - Suicidal ideation [Recovering/Resolving]

NARRATIVE: CASE EVENT DATE: 20241105
